FAERS Safety Report 5497933-4 (Version None)
Quarter: 2007Q4

REPORT INFORMATION
  Report Type: 
  Country: None (occurrence: None)
  Receive Date: 20071025
  Receipt Date: 20071017
  Transmission Date: 20080405
  Serious: Yes (Other)
  Sender: FDA-Public Use
  Company Number: DE-PFIZER INC-2007087998

PATIENT
  Age: 59 Year
  Sex: Female

DRUGS (3)
  1. CAMPTOSAR [Suspect]
     Indication: SMALL INTESTINE CARCINOMA
     Dosage: TEXT:6-8 WEEKS
     Route: 042
  2. FOLINIC ACID [Suspect]
     Indication: SMALL INTESTINE CARCINOMA
     Dosage: TEXT:6-8 WEEKS
     Route: 042
  3. FLUOROURACIL [Suspect]
     Indication: SMALL INTESTINE CARCINOMA
     Dosage: TEXT:6-8 WEEKS
     Route: 042

REACTIONS (1)
  - DEAFNESS [None]
